FAERS Safety Report 20857037 (Version 1)
Quarter: 2022Q2

REPORT INFORMATION
  Report Type: Spontaneous
  Country: US (occurrence: US)
  Receive Date: 20220520
  Receipt Date: 20220520
  Transmission Date: 20220721
  Serious: No
  Sender: FDA-Public Use
  Company Number: US-SANOFI-01102949

PATIENT
  Sex: Female

DRUGS (1)
  1. DUPIXENT [Suspect]
     Active Substance: DUPILUMAB
     Indication: Dermatitis atopic
     Dosage: DRUG STRUCTURE DOSAGE : 300 MG DRUG INTERVAL DOSAGE : EVERY OTHER WEEK DRUG TREATMENT DURATION:
     Dates: start: 20180913

REACTIONS (7)
  - Blister [Unknown]
  - Skin fissures [Unknown]
  - Skin wrinkling [Unknown]
  - Scar [Unknown]
  - Pruritus [Unknown]
  - Eczema [Unknown]
  - Therapeutic response decreased [Unknown]
